FAERS Safety Report 10285369 (Version 2)
Quarter: 2014Q3

REPORT INFORMATION
  Report Type: Report from Study
  Country: AR (occurrence: AR)
  Receive Date: 20140708
  Receipt Date: 20140708
  Transmission Date: 20150326
  Serious: Yes (Hospitalization)
  Sender: FDA-Public Use
  Company Number: PHHY2014AR017484

PATIENT
  Sex: Female

DRUGS (2)
  1. ONBREZ [Suspect]
     Active Substance: INDACATEROL
     Dosage: UNK
  2. XOLAIR [Suspect]
     Active Substance: OMALIZUMAB
     Indication: ASTHMA
     Dosage: UNK, EVERY 20 DAYS
     Dates: start: 2012

REACTIONS (3)
  - Agitation [Recovering/Resolving]
  - Asthmatic crisis [Recovered/Resolved]
  - Dyspnoea [Recovering/Resolving]
